FAERS Safety Report 7378378-9 (Version None)
Quarter: 2011Q1

REPORT INFORMATION
  Report Type: 
  Country: None (occurrence: None)
  Receive Date: 20110328
  Receipt Date: 20110325
  Transmission Date: 20110831
  Serious: Yes (Other)
  Sender: FDA-Public Use
  Company Number: VE-PFIZER INC-2011066787

PATIENT
  Age: 64 Year
  Sex: Male

DRUGS (1)
  1. CADUET [Suspect]
     Indication: HYPERTENSION
     Dosage: 50/20 MG, 1X/DAY
     Route: 048
     Dates: start: 20080101

REACTIONS (1)
  - CARDIAC OPERATION [None]
